FAERS Safety Report 11281030 (Version 1)
Quarter: 2015Q3

REPORT INFORMATION
  Report Type: Report from Study
  Country: US (occurrence: US)
  Receive Date: 20150717
  Receipt Date: 20150717
  Transmission Date: 20151125
  Serious: Yes (Other)
  Sender: FDA-Public Use
  Company Number: US-BAYER-2015-380952

PATIENT
  Age: 63 Year
  Sex: Male

DRUGS (1)
  1. STIVARGA [Suspect]
     Active Substance: REGORAFENIB
     Indication: COLON CANCER
     Dosage: 180 MG, QD
     Route: 048
     Dates: start: 20150618, end: 201507

REACTIONS (2)
  - Ascites [None]
  - Abdominal pain upper [None]

NARRATIVE: CASE EVENT DATE: 20150701
